FAERS Safety Report 4283033-8 (Version None)
Quarter: 2004Q1

REPORT INFORMATION
  Report Type: 
  Country: None (occurrence: None)
  Receive Date: 20040129
  Receipt Date: 20040116
  Transmission Date: 20041129
  Serious: Yes (Death)
  Sender: FDA-Public Use
  Company Number: US-JNJFOC-20040103199

PATIENT
  Age: 82 Year
  Sex: Female
  Weight: 61.6892 kg

DRUGS (11)
  1. INFLIXIMAB (INFLIXIMAB, RECOMBINANT)LYOPHILIZED POWDER [Suspect]
     Indication: RHEUMATOID ARTHRITIS
     Dosage: INTRAVENOUS
     Route: 042
     Dates: start: 20010420
  2. FOSAMAX [Concomitant]
  3. METHOTREXATE [Concomitant]
  4. NITROGLYCERIN [Concomitant]
  5. CELEBREX [Concomitant]
  6. NEURONTIN [Concomitant]
  7. DIPYRIDAMOLE [Concomitant]
  8. FOLTX (ALL OTHER THERAPEUTIC PRODUCTS) [Concomitant]
  9. OCUVITE EXTRA (OCUVITE) [Concomitant]
  10. CLARITIN [Concomitant]
  11. FLOVENT [Concomitant]

REACTIONS (1)
  - DEATH [None]
